FAERS Safety Report 4697680-2 (Version None)
Quarter: 2005Q2

REPORT INFORMATION
  Report Type: 
  Country: None (occurrence: None)
  Receive Date: 20050622
  Receipt Date: 20050609
  Transmission Date: 20051028
  Serious: Yes (Other)
  Sender: FDA-Public Use
  Company Number: 2005087530

PATIENT
  Age: 69 Year
  Sex: Male
  Weight: 86.1834 kg

DRUGS (2)
  1. XANAX [Suspect]
     Indication: SLEEP DISORDER
     Dosage: 1 MG ( 1 MG, 1 IN 1 AS NECESSARY), ORAL
     Route: 048
     Dates: start: 20050101
  2. AMBIEN [Concomitant]

REACTIONS (1)
  - MACULAR DEGENERATION [None]
